FAERS Safety Report 7237822-8 (Version None)
Quarter: 2011Q1

REPORT INFORMATION
  Report Type: 
  Country: None (occurrence: None)
  Receive Date: 20110121
  Receipt Date: 20110110
  Transmission Date: 20110831
  Serious: Yes (Other)
  Sender: FDA-Public Use
  Company Number: US-ELI_LILLY_AND_COMPANY-US201101002438

PATIENT
  Age: 78 Year
  Sex: Female

DRUGS (2)
  1. CRESTOR [Concomitant]
     Dates: start: 20101001
  2. FORTEO [Suspect]

REACTIONS (1)
  - HEART VALVE INCOMPETENCE [None]
